FAERS Safety Report 5286430-7 (Version None)
Quarter: 2007Q1

REPORT INFORMATION
  Report Type: 
  Country: None (occurrence: None)
  Receive Date: 20070116
  Receipt Date: 20060913
  Transmission Date: 20070707
  Serious: No
  Sender: FDA-Public Use
  Company Number: 2006SP003275

PATIENT
  Age: 83 Year
  Sex: Male
  Weight: 90.2658 kg

DRUGS (8)
  1. LUNESTA [Suspect]
     Indication: INSOMNIA
     Dosage: 3 MG;HS;ORAL
     Route: 048
     Dates: start: 20060101
  2. CAPTOPRIL [Concomitant]
  3. ATORVASTATIN CALCIUM [Concomitant]
  4. MECLIZINE [Concomitant]
  5. DIAZEPAM [Concomitant]
  6. ENTERIC ASPIRIN [Concomitant]
  7. NAPROXEN [Concomitant]
  8. UNSPECIFIED MEDICATION FOR NOCTURIA [Concomitant]

REACTIONS (1)
  - INSOMNIA [None]
